FAERS Safety Report 5656863-5 (Version None)
Quarter: 2008Q1

REPORT INFORMATION
  Report Type: 
  Country: None (occurrence: None)
  Receive Date: 20080310
  Receipt Date: 20080226
  Transmission Date: 20080703
  Serious: Yes (Hospitalization, Other)
  Sender: FDA-Public Use
  Company Number: US-AMGEN-QUU267200

PATIENT
  Sex: Female

DRUGS (3)
  1. ENBREL [Suspect]
     Indication: RHEUMATOID ARTHRITIS
     Route: 058
     Dates: start: 20060201
  2. PLAQUENIL [Concomitant]
     Dates: start: 20060201
  3. RESTASIS [Concomitant]

REACTIONS (3)
  - RESTLESS LEGS SYNDROME [None]
  - SPINAL COLUMN STENOSIS [None]
  - STAPHYLOCOCCAL INFECTION [None]
